FAERS Safety Report 6276724-0 (Version None)
Quarter: 2009Q3

REPORT INFORMATION
  Report Type: 
  Country: None (occurrence: None)
  Receive Date: 20090722
  Receipt Date: 20081001
  Transmission Date: 20100115
  Serious: Yes (Other)
  Sender: FDA-Public Use
  Company Number: US-BRISTOL-MYERS SQUIBB COMPANY-14283741

PATIENT
  Age: 77 Year
  Sex: Male
  Weight: 86 kg

DRUGS (7)
  1. COUMADIN [Suspect]
  2. CITRACAL + D [Suspect]
     Indication: MINERAL SUPPLEMENTATION
     Dosage: DOSAGE FORM = CAPLETS
     Route: 048
     Dates: start: 20080501
  3. SIMVASTATIN [Concomitant]
  4. METOPROLOL SUCCINATE [Concomitant]
  5. AMLODIPINE [Concomitant]
  6. DILTIAZEM HCL [Concomitant]
  7. LATANOPROST [Concomitant]

REACTIONS (1)
  - PROTHROMBIN TIME PROLONGED [None]
